FAERS Safety Report 6893463-3 (Version None)
Quarter: 2010Q3

REPORT INFORMATION
  Report Type: 
  Country: None (occurrence: None)
  Receive Date: 20100731
  Receipt Date: 20090916
  Transmission Date: 20110219
  Serious: No
  Sender: FDA-Public Use
  Company Number: US-PFIZER INC-2009249682

PATIENT
  Sex: Male

DRUGS (11)
  1. LIPITOR [Suspect]
     Indication: BLOOD CHOLESTEROL INCREASED
     Dosage: 40 MG, 1X/DAY
  2. ZETIA [Concomitant]
  3. ALPRAZOLAM [Concomitant]
  4. LYRICA [Concomitant]
  5. METOPROLOL [Concomitant]
  6. AVAPRO [Concomitant]
  7. ACTOS [Concomitant]
  8. LEVITRA [Concomitant]
  9. GABAPENTIN [Concomitant]
  10. CITALOPRAM [Concomitant]
  11. ALLEGRA [Concomitant]

REACTIONS (1)
  - AMNESIA [None]
